FAERS Safety Report 17025093 (Version 1)
Quarter: 2019Q4

REPORT INFORMATION
  Report Type: Spontaneous
  Country: US (occurrence: US)
  Receive Date: 20191009
  Receipt Date: 20191009
  Transmission Date: 20200122
  Serious: Yes (Other)
  Sender: FDA-Public Use
  Company Number: None

PATIENT
  Age: 47 Year
  Sex: Male

DRUGS (1)
  1. LISINOPRIL. [Suspect]
     Active Substance: LISINOPRIL
     Indication: HYPERTENSION
     Route: 048
     Dates: start: 20190906, end: 20191001

REACTIONS (4)
  - Palpitations [None]
  - Insomnia [None]
  - Product substitution issue [None]
  - Dizziness [None]

NARRATIVE: CASE EVENT DATE: 20190906
